FAERS Safety Report 8503345-9 (Version None)
Quarter: 2012Q3

REPORT INFORMATION
  Report Type: 
  Country: None (occurrence: None)
  Receive Date: 20120702
  Receipt Date: 20120621
  Transmission Date: 20120928
  Serious: Yes (Death)
  Sender: FDA-Public Use
  Company Number: JP-2012-15492

PATIENT
  Age: 78 Year
  Sex: Male
  Weight: 78 kg

DRUGS (10)
  1. ANCARON (AMIODARONE HYDROCHLORIDE) TABLET [Concomitant]
  2. LUPRAC (TORASEMIDE) TABLET [Concomitant]
  3. WARFARIN SODIUM [Concomitant]
  4. SAMSCA [Suspect]
     Indication: CARDIAC FAILURE
     Dosage: 7.5 MG MILLIGRAM(S), QD, ORAL, 15 MG MILLIGRAM(S), QD, ORAL
     Route: 048
     Dates: start: 20120525, end: 20120525
  5. SAMSCA [Suspect]
     Indication: CARDIAC FAILURE
     Dosage: 7.5 MG MILLIGRAM(S), QD, ORAL, 15 MG MILLIGRAM(S), QD, ORAL
     Route: 048
     Dates: start: 20120526, end: 20120527
  6. DIGOXIN [Concomitant]
  7. PRAVASTATIN [Concomitant]
  8. LASIX [Concomitant]
  9. TICLOPIDINE HCL [Concomitant]
  10. BABYASPIRIN  (ACETYLSALICYLIC ACID) TABLET [Concomitant]

REACTIONS (10)
  - BLOOD PRESSURE DECREASED [None]
  - CONDITION AGGRAVATED [None]
  - CARDIAC FAILURE [None]
  - PYREXIA [None]
  - DEPRESSED LEVEL OF CONSCIOUSNESS [None]
  - RESPIRATORY FAILURE [None]
  - SOMNOLENCE [None]
  - THERAPEUTIC RESPONSE DECREASED [None]
  - URINE OUTPUT INCREASED [None]
  - HYPERNATRAEMIA [None]
